FAERS Safety Report 22080722 (Version 2)
Quarter: 2023Q1

REPORT INFORMATION
  Report Type: Spontaneous
  Country: US (occurrence: US)
  Receive Date: 20230309
  Receipt Date: 20230309
  Transmission Date: 20230418
  Serious: No
  Sender: FDA-Public Use
  Company Number: US-GALDERMA-US2022006480

PATIENT

DRUGS (2)
  1. TRI-LUMA [Suspect]
     Active Substance: FLUOCINOLONE ACETONIDE\HYDROQUINONE\TRETINOIN
     Indication: Chloasma
     Dosage: 1 DOSAGE FORM
     Route: 061
  2. AVOBENZONE\OCTINOXATE [Concomitant]
     Active Substance: AVOBENZONE\OCTINOXATE
     Indication: Product used for unknown indication
     Route: 065

REACTIONS (4)
  - Drug ineffective [Unknown]
  - Intentional product misuse [Recovered/Resolved]
  - Intentional underdose [Recovered/Resolved]
  - Product storage error [Recovered/Resolved]
